FAERS Safety Report 8383345-2 (Version None)
Quarter: 2012Q2

REPORT INFORMATION
  Report Type: 
  Country: None (occurrence: None)
  Receive Date: 20120524
  Receipt Date: 20120217
  Transmission Date: 20120825
  Serious: No
  Sender: FDA-Public Use
  Company Number: US-GLAXOSMITHKLINE-A0966409A

PATIENT
  Age: 75 Year
  Sex: Female
  Weight: 72.5 kg

DRUGS (2)
  1. DIPHENHYDRAMINE HCL [Concomitant]
     Indication: PROPHYLAXIS
  2. ARZERRA [Suspect]
     Indication: PRODUCT USED FOR UNKNOWN INDICATION
     Dosage: 300MG PER DAY
     Route: 042

REACTIONS (1)
  - THROAT TIGHTNESS [None]
